FAERS Safety Report 5575938-2 (Version None)
Quarter: 2007Q4

REPORT INFORMATION
  Report Type: 
  Country: None (occurrence: None)
  Receive Date: 20071228
  Receipt Date: 20071220
  Transmission Date: 20080405
  Serious: Yes (Other)
  Sender: FDA-Public Use
  Company Number: CA-JNJFOC-20070702552

PATIENT
  Sex: Female
  Weight: 85 kg

DRUGS (11)
  1. REMICADE [Suspect]
     Route: 042
  2. REMICADE [Suspect]
     Route: 042
  3. REMICADE [Suspect]
     Route: 042
  4. REMICADE [Suspect]
     Route: 042
  5. REMICADE [Suspect]
     Route: 042
  6. REMICADE [Suspect]
     Indication: RHEUMATOID ARTHRITIS
     Route: 042
  7. ARAVA [Suspect]
     Indication: DRUG USE FOR UNKNOWN INDICATION
  8. PREMARIN [Concomitant]
     Dosage: 10 DAYS PER CYCLE.
  9. PREDNISONE [Concomitant]
  10. TYLENOL [Concomitant]
  11. ADVIL LIQUI-GELS [Concomitant]

REACTIONS (4)
  - HYPOAESTHESIA ORAL [None]
  - PARAESTHESIA [None]
  - URINARY INCONTINENCE [None]
  - URINE OUTPUT INCREASED [None]
